FAERS Safety Report 5386730-6 (Version None)
Quarter: 2007Q3

REPORT INFORMATION
  Report Type: 
  Country: None (occurrence: None)
  Receive Date: 20070713
  Receipt Date: 20070702
  Transmission Date: 20080115
  Serious: Yes (Other)
  Sender: FDA-Public Use
  Company Number: US-ASTRAZENECA-2006UW07581

PATIENT
  Age: 369 Month
  Sex: Male
  Weight: 84.1 kg

DRUGS (10)
  1. SEROQUEL [Suspect]
     Indication: SCHIZOPHRENIA
     Route: 048
     Dates: start: 19971101, end: 19980101
  2. SEROQUEL [Suspect]
     Indication: BIPOLAR DISORDER
     Route: 048
     Dates: start: 19971101, end: 19980101
  3. CLOZARIL [Concomitant]
     Dates: start: 19940101, end: 19960101
  4. GEODON [Concomitant]
     Dates: start: 20030101
  5. NAVANE [Concomitant]
     Dates: start: 19920101
  6. RISPERDAL [Concomitant]
     Dates: start: 20020101, end: 20030101
  7. THORAZINE [Concomitant]
     Dates: start: 19920101
  8. TRILAFON [Concomitant]
     Dates: start: 19920101
  9. ZYPREXA [Concomitant]
     Dates: start: 20020101, end: 20030101
  10. UNSPECIFIED [Concomitant]

REACTIONS (12)
  - ANGIOPATHY [None]
  - BLOOD CHOLESTEROL INCREASED [None]
  - BRAIN OPERATION [None]
  - DEPRESSION [None]
  - DIABETES MELLITUS [None]
  - EPILEPSY [None]
  - INTERMITTENT EXPLOSIVE DISORDER [None]
  - LUNG DISORDER [None]
  - MUSCULOSKELETAL PAIN [None]
  - OBSESSIVE-COMPULSIVE DISORDER [None]
  - PAPILLOEDEMA [None]
  - TARDIVE DYSKINESIA [None]
